FAERS Safety Report 6975276-7 (Version None)
Quarter: 2010Q3

REPORT INFORMATION
  Report Type: 
  Country: None (occurrence: None)
  Receive Date: 20100910
  Receipt Date: 20090218
  Transmission Date: 20110219
  Serious: No
  Sender: FDA-Public Use
  Company Number: US-WYE-H08420409

PATIENT
  Sex: Male
  Weight: 81.72 kg

DRUGS (4)
  1. PRISTIQ [Suspect]
     Indication: DEPRESSION
     Route: 048
     Dates: start: 20090217
  2. PRISTIQ [Suspect]
     Indication: ANXIETY
  3. DICYCLOMINE HYDROCHLORIDE [Concomitant]
  4. NEXIUM [Concomitant]

REACTIONS (5)
  - DECREASED APPETITE [None]
  - HEADACHE [None]
  - INSOMNIA [None]
  - NAUSEA [None]
  - SEXUAL DYSFUNCTION [None]
